FAERS Safety Report 4817625-1 (Version None)
Quarter: 2005Q4

REPORT INFORMATION
  Report Type: 
  Country: None (occurrence: None)
  Receive Date: 20051019
  Receipt Date: 20041210
  Transmission Date: 20060501
  Serious: Yes (Other)
  Sender: FDA-Public Use
  Company Number: PHEH2004US11455

PATIENT
  Age: 86 Year
  Sex: Female

DRUGS (3)
  1. MIACALCIN [Suspect]
     Indication: OSTEOPOROSIS
  2. LEVOTHROID [Concomitant]
  3. EVISTA [Concomitant]

REACTIONS (2)
  - DEAFNESS [None]
  - TINNITUS [None]
